FAERS Safety Report 7004809-X (Version None)
Quarter: 2010Q3

REPORT INFORMATION
  Report Type: 
  Country: None (occurrence: None)
  Receive Date: 20100921
  Receipt Date: 20100601
  Transmission Date: 20110219
  Serious: No
  Sender: FDA-Public Use
  Company Number: A0862247A

PATIENT
  Age: 50 Year
  Sex: Male

DRUGS (5)
  1. EPZICOM [Suspect]
     Indication: HIV INFECTION
     Route: 048
     Dates: start: 20090901, end: 20100101
  2. VIRAMUNE [Concomitant]
  3. AVODART [Concomitant]
  4. LOPID [Concomitant]
  5. UROXATRAL [Concomitant]

REACTIONS (2)
  - HYPERSENSITIVITY [None]
  - RASH MACULAR [None]
